FAERS Safety Report 12582339 (Version 1)
Quarter: 2016Q3

REPORT INFORMATION
  Report Type: Spontaneous
  Country: US (occurrence: None)
  Receive Date: 20160721
  Receipt Date: 20160721
  Transmission Date: 20161109
  Serious: No
  Sender: FDA-Public Use
  Company Number: None

PATIENT
  Age: 58 Year
  Sex: Female

DRUGS (2)
  1. HARVONI [Suspect]
     Active Substance: LEDIPASVIR\SOFOSBUVIR
     Indication: HEPATITIS C
     Dosage: 90-400MG QD PO
     Route: 048
     Dates: start: 201605
  2. XANAX XR [Concomitant]
     Active Substance: ALPRAZOLAM

REACTIONS (4)
  - Flatulence [None]
  - Dizziness [None]
  - Faeces soft [None]
  - Abdominal discomfort [None]

NARRATIVE: CASE EVENT DATE: 201605
